FAERS Safety Report 10730073 (Version 1)
Quarter: 2015Q1

REPORT INFORMATION
  Report Type: Spontaneous
  Country: BR (occurrence: BR)
  Receive Date: 20150122
  Receipt Date: 20150122
  Transmission Date: 20150721
  Serious: Yes (Other)
  Sender: FDA-Public Use
  Company Number: BR-PFIZER INC-2014268961

PATIENT
  Age: 16 Year
  Sex: Female
  Weight: 104 kg

DRUGS (3)
  1. ZOLOFT [Suspect]
     Active Substance: SERTRALINE HYDROCHLORIDE
     Dosage: 4 TABLETS OF 50MG (200 MG), DAILY
     Route: 048
     Dates: start: 2014, end: 20141128
  2. TRILEPTAL [Concomitant]
     Active Substance: OXCARBAZEPINE
     Indication: SEIZURE
     Dosage: 3 TABLETS, AT NIGHT
  3. ZOLOFT [Suspect]
     Active Substance: SERTRALINE HYDROCHLORIDE
     Indication: DEPRESSION
     Dosage: 50 MG, DAILY
     Route: 048
     Dates: start: 20140916, end: 2014

REACTIONS (8)
  - Abnormal behaviour [Recovered/Resolved]
  - Intestinal haemorrhage [Recovered/Resolved]
  - Restless legs syndrome [Recovered/Resolved]
  - Self injurious behaviour [Recovered/Resolved]
  - Wound [Recovered/Resolved]
  - Haematochezia [Recovered/Resolved]
  - Depression [Recovered/Resolved]
  - Anxiety [Recovered/Resolved]

NARRATIVE: CASE EVENT DATE: 2014
